FAERS Safety Report 23020106 (Version 1)
Quarter: 2023Q4

REPORT INFORMATION
  Report Type: Spontaneous
  Country: FR (occurrence: FR)
  Receive Date: 20231003
  Receipt Date: 20231003
  Transmission Date: 20240109
  Serious: Yes (Other)
  Sender: FDA-Public Use
  Company Number: None

PATIENT
  Age: 75 Year
  Sex: Male

DRUGS (3)
  1. CARBOPLATIN [Suspect]
     Active Substance: CARBOPLATIN
     Indication: Small cell lung cancer
     Dosage: 610 MILLIGRAM, Q21D
     Route: 042
     Dates: start: 20230118, end: 20230406
  2. ETOPOSIDE [Suspect]
     Active Substance: ETOPOSIDE
     Indication: Small cell lung cancer
     Dosage: 210 MILLIGRAM, Q21D
     Route: 042
     Dates: start: 20230118, end: 20230408
  3. IMFINZI [Suspect]
     Active Substance: DURVALUMAB
     Indication: Small cell lung cancer
     Dosage: 1500 MILLIGRAM, Q21D
     Route: 042
     Dates: start: 20230118, end: 20230605

REACTIONS (4)
  - Acute kidney injury [Not Recovered/Not Resolved]
  - Autoimmune hypothyroidism [Not Recovered/Not Resolved]
  - Thrombocytopenia [Recovering/Resolving]
  - Myositis [Not Recovered/Not Resolved]

NARRATIVE: CASE EVENT DATE: 20230202
